FAERS Safety Report 5776562-9 (Version None)
Quarter: 2008Q2

REPORT INFORMATION
  Report Type: 
  Country: None (occurrence: None)
  Receive Date: 20080618
  Receipt Date: 20080612
  Transmission Date: 20081010
  Serious: Yes (Hospitalization)
  Sender: FDA-Public Use
  Company Number: US-AMGEN-QUU286607

PATIENT
  Sex: Female

DRUGS (3)
  1. NEULASTA [Suspect]
     Indication: CHEMOTHERAPY
  2. TAXOTERE [Concomitant]
  3. CYTOXAN [Concomitant]

REACTIONS (3)
  - FLUSHING [None]
  - PHARYNGEAL OEDEMA [None]
  - URTICARIA [None]
